FAERS Safety Report 15568923 (Version 1)
Quarter: 2018Q4

REPORT INFORMATION
  Report Type: Spontaneous
  Country: IT (occurrence: IT)
  Receive Date: 20181031
  Receipt Date: 20181031
  Transmission Date: 20190205
  Serious: Yes (Other)
  Sender: FDA-Public Use
  Company Number: IT-AUROBINDO-AUR-APL-2018-052515

PATIENT
  Age: 34 Year
  Sex: Male

DRUGS (3)
  1. ZOLPIDEM [Suspect]
     Active Substance: ZOLPIDEM\ZOLPIDEM TARTRATE
     Indication: PRODUCT USED FOR UNKNOWN INDICATION
     Dosage: 100 MILLIGRAM, IN TOTAL
     Route: 048
     Dates: start: 20180811, end: 20180811
  2. VALTRAX [Suspect]
     Active Substance: DIAZEPAM\ISOPROPAMIDE IODIDE
     Indication: PRODUCT USED FOR UNKNOWN INDICATION
     Dosage: 13 DOSAGE FORM, IN TOTAL
     Route: 048
     Dates: start: 20180811, end: 20180811
  3. BENERVA [Suspect]
     Active Substance: THIAMINE HYDROCHLORIDE
     Indication: PRODUCT USED FOR UNKNOWN INDICATION
     Dosage: 6 GRAM, IN TOTAL
     Route: 048
     Dates: start: 20180811, end: 20180811

REACTIONS (4)
  - Drug abuse [Recovering/Resolving]
  - Abdominal distension [Recovering/Resolving]
  - Constipation [Recovering/Resolving]
  - Hypokinesia [Recovering/Resolving]

NARRATIVE: CASE EVENT DATE: 20180811
